FAERS Safety Report 8110559-9 (Version None)
Quarter: 2012Q1

REPORT INFORMATION
  Report Type: 
  Country: None (occurrence: None)
  Receive Date: 20120203
  Receipt Date: 20120119
  Transmission Date: 20120608
  Serious: Yes (Hospitalization)
  Sender: FDA-Public Use
  Company Number: US-RB-033960-12

PATIENT
  Age: 60 Year
  Sex: Male

DRUGS (5)
  1. DELSYM [Suspect]
     Indication: NASOPHARYNGITIS
     Route: 048
     Dates: start: 20110830, end: 20110830
  2. DELSYM [Suspect]
     Indication: COUGH
     Route: 048
     Dates: start: 20120112
  3. COREG [Concomitant]
     Indication: PRODUCT USED FOR UNKNOWN INDICATION
  4. DIOVAN [Concomitant]
     Indication: PRODUCT USED FOR UNKNOWN INDICATION
     Dosage: FOR 30 YEARS
  5. ACETYLSALICYLIC ACID SRT [Concomitant]
     Indication: PRODUCT USED FOR UNKNOWN INDICATION

REACTIONS (3)
  - STRIDOR [None]
  - RESPIRATORY DISORDER [None]
  - VOCAL CORD PARALYSIS [None]
